FAERS Safety Report 18525097 (Version 2)
Quarter: 2020Q4

REPORT INFORMATION
  Report Type: Spontaneous
  Country: CA (occurrence: CA)
  Receive Date: 20201120
  Receipt Date: 20201122
  Transmission Date: 20210114
  Serious: Yes (Other)
  Sender: FDA-Public Use
  Company Number: CA-JNJFOC-20201119770

PATIENT
  Sex: Male

DRUGS (26)
  1. TRIFLUOPERAZINE [Concomitant]
     Active Substance: TRIFLUOPERAZINE HYDROCHLORIDE
  2. LITHIUM. [Suspect]
     Active Substance: LITHIUM
     Route: 065
  3. OLANZAPINE. [Suspect]
     Active Substance: OLANZAPINE
     Route: 065
  4. LOXAPINE. [Concomitant]
     Active Substance: LOXAPINE
  5. PERPHENAZINE. [Concomitant]
     Active Substance: PERPHENAZINE
  6. GABAPENTIN. [Concomitant]
     Active Substance: GABAPENTIN
  7. ZIPRASIDONE HYDROCHLORIDE. [Concomitant]
     Active Substance: ZIPRASIDONE HYDROCHLORIDE
  8. AMISULPRIDE [Concomitant]
     Active Substance: AMISULPRIDE
  9. SAPHRIS [Concomitant]
     Active Substance: ASENAPINE MALEATE
     Route: 065
  10. SODIUM VALPROATE [Concomitant]
     Active Substance: VALPROATE SODIUM
  11. RISPERDAL [Suspect]
     Active Substance: RISPERIDONE
     Indication: PSYCHOTIC DISORDER
     Route: 065
  12. RISPERDAL [Suspect]
     Active Substance: RISPERIDONE
     Route: 065
  13. ABILIFY [Concomitant]
     Active Substance: ARIPIPRAZOLE
     Route: 065
  14. CITALOPRAM [Concomitant]
     Active Substance: CITALOPRAM HYDROBROMIDE
  15. HALOPERIDOL. [Concomitant]
     Active Substance: HALOPERIDOL
  16. RISPERDAL [Suspect]
     Active Substance: RISPERIDONE
     Route: 065
  17. CLOZAPINE. [Suspect]
     Active Substance: CLOZAPINE
     Indication: PSYCHOTIC DISORDER
     Route: 065
  18. LITHIUM. [Suspect]
     Active Substance: LITHIUM
     Route: 065
  19. CLOMIPRAMINE [Concomitant]
     Active Substance: CLOMIPRAMINE
  20. OLANZAPINE. [Suspect]
     Active Substance: OLANZAPINE
     Indication: PSYCHOTIC DISORDER
     Route: 065
  21. OLANZAPINE. [Suspect]
     Active Substance: OLANZAPINE
     Route: 065
  22. FLUPENTIXOL [Concomitant]
     Active Substance: FLUPENTIXOL
  23. QUETIAPINE. [Concomitant]
     Active Substance: QUETIAPINE
  24. LITHIUM. [Suspect]
     Active Substance: LITHIUM
     Indication: AFFECTIVE DISORDER
     Route: 065
  25. FLUOXETINE [Concomitant]
     Active Substance: FLUOXETINE HYDROCHLORIDE
  26. THIORIDAZINE [Concomitant]
     Active Substance: THIORIDAZINE
     Route: 048

REACTIONS (6)
  - Obesity [Unknown]
  - Dyslipidaemia [Unknown]
  - Leukopenia [Unknown]
  - Hypertension [Unknown]
  - Obsessive-compulsive disorder [Unknown]
  - Drug ineffective [Unknown]
